FAERS Safety Report 19687911 (Version 1)
Quarter: 2021Q3

REPORT INFORMATION
  Report Type: Spontaneous
  Country: DE (occurrence: DE)
  Receive Date: 20210812
  Receipt Date: 20210812
  Transmission Date: 20211014
  Serious: Yes (Other)
  Sender: FDA-Public Use
  Company Number: DE-AUROBINDO-AUR-APL-2019-017059

PATIENT
  Age: 62 Year
  Sex: Male
  Weight: 46.2 kg

DRUGS (10)
  1. PEMETREXED DISODIUM [Suspect]
     Active Substance: PEMETREXED DISODIUM
     Indication: NEOPLASM
     Dosage: UNK
     Route: 065
     Dates: start: 20190108, end: 20190205
  2. NINTEDANIB [Suspect]
     Active Substance: NINTEDANIB
     Indication: NEOPLASM
     Dosage: UNK
     Route: 065
     Dates: start: 20190219, end: 20190902
  3. DOCETAXEL. [Suspect]
     Active Substance: DOCETAXEL
     Indication: LUNG ADENOCARCINOMA
     Dosage: UNK
     Route: 065
     Dates: start: 20190219, end: 20190604
  4. CISPLATIN. [Suspect]
     Active Substance: CISPLATIN
     Indication: NEOPLASM
     Dosage: UNK
     Route: 065
     Dates: start: 20190108, end: 20190205
  5. VINORELBINE TARTRATE. [Suspect]
     Active Substance: VINORELBINE TARTRATE
  6. DOCETAXEL. [Suspect]
     Active Substance: DOCETAXEL
     Indication: NEOPLASM
     Dosage: FORMULATION: LIQUID; DOSE PER APPLICATION AND DAILY DOSE: 75MG/M2 BODY SURFACE AREA
     Route: 042
     Dates: start: 20151012
  7. VARGATEF [Suspect]
     Active Substance: NINTEDANIB
     Indication: NEOPLASM
     Dosage: UNK
     Route: 065
     Dates: start: 20190219, end: 20190902
  8. VARGATEF [Suspect]
     Active Substance: NINTEDANIB
     Indication: LUNG ADENOCARCINOMA
     Dosage: 400 MILLIGRAM, ONCE A DAY
     Route: 048
     Dates: start: 20151012
  9. CISPLATIN. [Suspect]
     Active Substance: CISPLATIN
     Indication: NEOPLASM
     Dosage: UNK
     Route: 065
     Dates: start: 20171023, end: 20180103
  10. PEMBROLIZUMAB. [Suspect]
     Active Substance: PEMBROLIZUMAB
     Indication: NEOPLASM
     Dosage: UNK
     Route: 065
     Dates: start: 20190108, end: 20190205

REACTIONS (12)
  - Nausea [Recovered/Resolved]
  - Febrile neutropenia [Recovered/Resolved]
  - Skin toxicity [Recovered/Resolved]
  - Weight decreased [Recovered/Resolved]
  - Stomatitis [Unknown]
  - Malignant neoplasm progression [Unknown]
  - Pyrexia [Recovered/Resolved]
  - Neutrophil count decreased [Not Recovered/Not Resolved]
  - Diarrhoea [Recovered/Resolved]
  - Fatigue [Not Recovered/Not Resolved]
  - Nasopharyngitis [Recovered/Resolved]
  - Peripheral sensory neuropathy [Not Recovered/Not Resolved]

NARRATIVE: CASE EVENT DATE: 20151017
